FAERS Safety Report 5507324-5 (Version None)
Quarter: 2007Q4

REPORT INFORMATION
  Report Type: 
  Country: None (occurrence: None)
  Receive Date: 20071102
  Receipt Date: 20071025
  Transmission Date: 20080405
  Serious: Yes (Other)
  Sender: FDA-Public Use
  Company Number: 2007SP019583

PATIENT
  Age: 69 Year
  Sex: Female

DRUGS (6)
  1. TEMODAL [Suspect]
     Indication: METASTASES TO CENTRAL NERVOUS SYSTEM
     Dosage: 120 MG;QD;PO
     Route: 048
     Dates: start: 20070827, end: 20070914
  2. TEMODAL [Suspect]
     Indication: NON-SMALL CELL LUNG CANCER METASTATIC
     Dosage: 120 MG;QD;PO
     Route: 048
     Dates: start: 20070827, end: 20070914
  3. DALMADORM (CON.) [Concomitant]
  4. MST (CON.) [Concomitant]
  5. FORTECORTIN (CON.) [Concomitant]
  6. DEANXIT (CON.) [Concomitant]

REACTIONS (5)
  - ALANINE AMINOTRANSFERASE INCREASED [None]
  - ASPARTATE AMINOTRANSFERASE INCREASED [None]
  - BLOOD ALKALINE PHOSPHATASE INCREASED [None]
  - GAMMA-GLUTAMYLTRANSFERASE INCREASED [None]
  - TRANSAMINASES INCREASED [None]
